FAERS Safety Report 8297316-8 (Version None)
Quarter: 2012Q2

REPORT INFORMATION
  Report Type: 
  Country: None (occurrence: None)
  Receive Date: 20120417
  Receipt Date: 20120404
  Transmission Date: 20120825
  Serious: Yes (Congenital Anomaly, Other)
  Sender: FDA-Public Use
  Company Number: 20120173

PATIENT
  Sex: Female

DRUGS (6)
  1. PHENYTOIN SODIUM [Suspect]
     Indication: AFFECTIVE DISORDER
     Dosage: 200 MG AT WEEK 10
  2. PHENYTOIN SODIUM [Suspect]
     Indication: EPILEPSY
     Dosage: 200 MG AT WEEK 10
  3. VALPROIC ACID [Suspect]
     Indication: AFFECTIVE DISORDER
     Dosage: 500 MG AT LMP UNKNOWN
  4. VALPROIC ACID [Suspect]
     Indication: EPILEPSY
     Dosage: 500 MG AT LMP UNKNOWN
  5. CARBAMAZEPINE [Suspect]
     Indication: AFFECTIVE DISORDER
     Dosage: 400 MG AT WEEK 11
  6. CARBAMAZEPINE [Suspect]
     Indication: EPILEPSY
     Dosage: 400 MG AT WEEK 11

REACTIONS (1)
  - MATERNAL EXPOSURE DURING PREGNANCY [None]
